FAERS Safety Report 11814449 (Version 1)
Quarter: 2015Q4

REPORT INFORMATION
  Report Type: Spontaneous
  Country: PT (occurrence: None)
  Receive Date: 20151208
  Receipt Date: 20151208
  Transmission Date: 20160305
  Serious: Yes (Hospitalization)
  Sender: FDA-Public Use
  Company Number: 15JP001897

PATIENT
  Age: 72 Year
  Sex: Female

DRUGS (3)
  1. LOSARTAN + HYDROCLOROTIAZIDA (HYDROCHLOROTHIAZIDE, LOSARTAN) [Concomitant]
  2. PITAVASTATIN [Suspect]
     Active Substance: PITAVASTATIN
     Indication: DYSLIPIDAEMIA
     Route: 048
  3. PROPAFENONE (PROPAFENONE) [Concomitant]
     Active Substance: PROPAFENONE

REACTIONS (4)
  - Ventricular tachycardia [None]
  - Pneumonia [None]
  - Stress cardiomyopathy [None]
  - Cardiogenic shock [None]
